FAERS Safety Report 5321166-5 (Version None)
Quarter: 2007Q2

REPORT INFORMATION
  Report Type: 
  Country: None (occurrence: None)
  Receive Date: 20070507
  Receipt Date: 20070507
  Transmission Date: 20071010
  Serious: Yes (Other)
  Sender: FDA-Public Use
  Company Number: None

PATIENT
  Age: 53 Year
  Sex: Female
  Weight: 74.8435 kg

DRUGS (2)
  1. ZELNORM [Suspect]
     Indication: CONSTIPATION
     Dosage: 1     1     PO
     Route: 048
     Dates: start: 20060501, end: 20070504
  2. ZELNORM [Suspect]
     Indication: IRRITABLE BOWEL SYNDROME
     Dosage: 1     1     PO
     Route: 048
     Dates: start: 20060501, end: 20070504

REACTIONS (4)
  - CHEST PAIN [None]
  - DIZZINESS [None]
  - HYPOTENSION [None]
  - SYNCOPE [None]
